FAERS Safety Report 4475209-1 (Version None)
Quarter: 2004Q4

REPORT INFORMATION
  Report Type: 
  Country: None (occurrence: None)
  Receive Date: 20041013
  Receipt Date: 20041013
  Transmission Date: 20050328
  Serious: Yes (Other)
  Sender: FDA-Public Use
  Company Number: None

PATIENT
  Age: 20 Year
  Sex: Female

DRUGS (1)
  1. KETEK [Suspect]
     Dosage: 400 MG ORAL
     Route: 048
     Dates: start: 20040821, end: 20040823

REACTIONS (5)
  - ACTIVITIES OF DAILY LIVING IMPAIRED [None]
  - IMPAIRED DRIVING ABILITY [None]
  - IMPAIRED WORK ABILITY [None]
  - VISION BLURRED [None]
  - VISUAL DISTURBANCE [None]
